FAERS Safety Report 17874711 (Version 1)
Quarter: 2020Q2

REPORT INFORMATION
  Report Type: Spontaneous
  Country: FR (occurrence: FR)
  Receive Date: 20200609
  Receipt Date: 20200609
  Transmission Date: 20200714
  Serious: Yes (Hospitalization)
  Sender: FDA-Public Use
  Company Number: NVSC2020FR158574

PATIENT
  Age: 22 Year
  Sex: Female

DRUGS (5)
  1. RISPERDAL [Concomitant]
     Active Substance: RISPERIDONE
     Indication: PRODUCT USED FOR UNKNOWN INDICATION
     Dosage: 1 DF, QD (IN THE MORNING AND EVENING)
     Route: 065
  2. TEGRETOL [Suspect]
     Active Substance: CARBAMAZEPINE
     Dosage: 200 MG, BID ((200 MG + 3 X 200 MG)1 TABLET IN THE MORNING AND 3 TABLETS IN THE EVENENING)
     Route: 065
     Dates: start: 20200506
  3. TEGRETOL [Suspect]
     Active Substance: CARBAMAZEPINE
     Indication: PRODUCT USED FOR UNKNOWN INDICATION
     Dosage: 200 MG, BID DAILY (IN THE EVENING)
     Route: 065
     Dates: start: 20200417
  4. TEGRETOL [Suspect]
     Active Substance: CARBAMAZEPINE
     Dosage: 200 MG, BID (IN THE MORNING AND IN THE  EVENING)
     Route: 065
  5. TEGRETOL [Suspect]
     Active Substance: CARBAMAZEPINE
     Indication: PRODUCT USED FOR UNKNOWN INDICATION
     Dosage: 200 MG, BID ((200 MG + 3 X 200 MG)1 TABLET IN THE MORNING AND 3 TABLETS IN THE EVENENING)
     Route: 065

REACTIONS (3)
  - Product prescribing error [Unknown]
  - Malaise [Unknown]
  - Somnolence [Unknown]
